FAERS Safety Report 5016299-7 (Version None)
Quarter: 2006Q2

REPORT INFORMATION
  Report Type: 
  Country: None (occurrence: None)
  Receive Date: 20060414
  Receipt Date: 20060123
  Transmission Date: 20061013
  Serious: No
  Sender: FDA-Public Use
  Company Number: 2006SP000434

PATIENT
  Age: 54 Year
  Sex: Female
  Weight: 65.7716 kg

DRUGS (2)
  1. LUNESTA [Suspect]
     Dosage: 3 MG;ORAL
     Route: 048
     Dates: start: 20050101, end: 20060101
  2. ANTIHYPERTENSIVES [Concomitant]

REACTIONS (3)
  - HEADACHE [None]
  - NAUSEA [None]
  - SOMNOLENCE [None]
